FAERS Safety Report 6842768-0 (Version None)
Quarter: 2010Q3

REPORT INFORMATION
  Report Type: 
  Country: None (occurrence: None)
  Receive Date: 20100714
  Receipt Date: 20070926
  Transmission Date: 20110219
  Serious: Yes (Other)
  Sender: FDA-Public Use
  Company Number: US-PFIZER INC-2007064033

PATIENT
  Sex: Female
  Weight: 72.6 kg

DRUGS (1)
  1. CHANTIX [Suspect]
     Route: 048
     Dates: start: 20070726

REACTIONS (1)
  - VIITH NERVE PARALYSIS [None]
